FAERS Safety Report 10914229 (Version 1)
Quarter: 2015Q1

REPORT INFORMATION
  Report Type: Spontaneous
  Country: CN (occurrence: CN)
  Receive Date: 20150313
  Receipt Date: 20150313
  Transmission Date: 20150721
  Serious: Yes (Other)
  Sender: FDA-Public Use
  Company Number: PHHY2015CN027827

PATIENT
  Age: 68 Year
  Sex: Male

DRUGS (3)
  1. MITOMYCIN. [Suspect]
     Active Substance: MITOMYCIN
     Indication: HEPATOCELLULAR CARCINOMA
     Dosage: 10 MG, UNK
     Route: 065
  2. PIRARUBICIN [Suspect]
     Active Substance: PIRARUBICIN
     Indication: HEPATOCELLULAR CARCINOMA
     Dosage: 50 MG, UNK
     Route: 065
  3. OXALIPLATIN. [Suspect]
     Active Substance: OXALIPLATIN
     Indication: HEPATOCELLULAR CARCINOMA
     Dosage: 150 MG, UNK
     Route: 065

REACTIONS (8)
  - Spinal cord injury thoracic [Recovered/Resolved]
  - Pain [Recovered/Resolved]
  - Tenderness [Recovered/Resolved]
  - Asthenia [Recovered/Resolved]
  - Urinary retention [Recovered/Resolved]
  - Skin necrosis [Recovered/Resolved]
  - Decreased vibratory sense [Recovered/Resolved]
  - Extensor plantar response [Recovered/Resolved]
